FAERS Safety Report 6751741-2 (Version None)
Quarter: 2010Q2

REPORT INFORMATION
  Report Type: 
  Country: None (occurrence: None)
  Receive Date: 20100526
  Receipt Date: 20100422
  Transmission Date: 20101027
  Serious: Yes (Hospitalization)
  Sender: FDA-Public Use
  Company Number: 307513

PATIENT
  Age: 71 Year
  Sex: Male
  Weight: 198.5 kg

DRUGS (2)
  1. VICTOZA [Suspect]
     Indication: DIABETES MELLITUS INADEQUATE CONTROL
     Dosage: 0.6 MG, QD, SUBCUTANEOUS
     Route: 058
     Dates: start: 20100301, end: 20100401
  2. METFORMIN HCL [Concomitant]

REACTIONS (1)
  - URINARY TRACT INFECTION [None]
